FAERS Safety Report 4614186-7 (Version None)
Quarter: 2005Q1

REPORT INFORMATION
  Report Type: 
  Country: None (occurrence: None)
  Receive Date: 20050316
  Receipt Date: 20050308
  Transmission Date: 20050727
  Serious: Yes (Life-Threatening)
  Sender: FDA-Public Use
  Company Number: 2005AP01639

PATIENT

DRUGS (1)
  1. PROPOFOL [Suspect]
     Dosage: 100 MG/HR

REACTIONS (1)
  - TORSADE DE POINTES [None]
